FAERS Safety Report 8615965 (Version 2)
Quarter: 2012Q4

REPORT INFORMATION
  Report Type: 
  Country: US (occurrence: US)
  Receive Date: 20120614
  Receipt Date: 20120927
  Transmission Date: 20130627
  Serious: No
  Sender: FDA-Public Use
  Company Number: US-AMGEN-USASP2012032271

PATIENT
  Sex: Male
  Weight: 79 kg

DRUGS (5)
  1. XGEVA [Suspect]
     Indication: PRODUCT USED FOR UNKNOWN INDICATION
     Dosage: 120 mg, qmo
     Route: 058
     Dates: start: 20110811, end: 20111108
  2. XGEVA [Suspect]
     Dosage: 120 mg, qmo
     Route: 058
     Dates: start: 20110811, end: 20111108
  3. XGEVA [Suspect]
     Dosage: 90 mg, qmo
     Route: 058
     Dates: start: 20111208
  4. XGEVA [Suspect]
     Dosage: 90 mg, qmo
     Route: 058
     Dates: start: 20111208
  5. XGEVA [Suspect]
     Dosage: 90 mg, qmo
     Route: 058
     Dates: start: 20111208

REACTIONS (1)
  - Bone pain [Unknown]
